FAERS Safety Report 5411009-3 (Version None)
Quarter: 2007Q3

REPORT INFORMATION
  Report Type: 
  Country: None (occurrence: None)
  Receive Date: 20070810
  Receipt Date: 20070807
  Transmission Date: 20080115
  Serious: Yes (Other)
  Sender: FDA-Public Use
  Company Number: ES-BRISTOL-MYERS SQUIBB COMPANY-13334750

PATIENT
  Age: 24 Year
  Sex: Female
  Weight: 61 kg

DRUGS (5)
  1. IRBESARTAN [Suspect]
     Indication: HYPERTENSION
  2. INSULIN GLARGINE [Suspect]
  3. HYDROCHLOROTHIAZIDE [Concomitant]
  4. INSULIN [Concomitant]
  5. LEVOTHYROXINE SODIUM [Concomitant]

REACTIONS (4)
  - ABORTION INDUCED [None]
  - CONGENITAL CENTRAL NERVOUS SYSTEM ANOMALY [None]
  - PREGNANCY [None]
  - RENAL APLASIA [None]
